FAERS Safety Report 13418649 (Version 1)
Quarter: 2017Q2

REPORT INFORMATION
  Report Type: Spontaneous
  Country: US (occurrence: US)
  Receive Date: 20170406
  Receipt Date: 20170406
  Transmission Date: 20170830
  Serious: Yes (Life-Threatening, Hospitalization)
  Sender: FDA-Public Use
  Company Number: US-ABBVIE-17P-163-1935161-00

PATIENT
  Age: 4 Month
  Sex: Male
  Weight: 6.5 kg

DRUGS (3)
  1. LASIX [Concomitant]
     Active Substance: FUROSEMIDE
     Indication: CARDIAC FAILURE
     Route: 048
     Dates: start: 20161006
  2. VITAMIN D [Concomitant]
     Active Substance: CHOLECALCIFEROL
     Indication: SUPPLEMENTATION THERAPY
     Route: 048
  3. SYNAGIS [Suspect]
     Active Substance: PALIVIZUMAB
     Indication: VENTRICULAR SEPTAL DEFECT
     Route: 030
     Dates: start: 20161107

REACTIONS (6)
  - Hypoxia [Unknown]
  - Viral infection [Unknown]
  - Unevaluable event [Unknown]
  - Rhinovirus infection [Unknown]
  - Drug dose omission [Unknown]
  - Failure to thrive [Unknown]

NARRATIVE: CASE EVENT DATE: 201702
